FAERS Safety Report 5491063-3 (Version None)
Quarter: 2007Q4

REPORT INFORMATION
  Report Type: 
  Country: None (occurrence: None)
  Receive Date: 20071019
  Receipt Date: 20071010
  Transmission Date: 20080405
  Serious: Yes (Hospitalization, Other)
  Sender: FDA-Public Use
  Company Number: US-PFIZER INC-2007043180

PATIENT
  Sex: Male
  Weight: 67.1 kg

DRUGS (2)
  1. CELEBREX [Suspect]
     Indication: MYALGIA
  2. CELEBREX [Suspect]
     Indication: ARTHRALGIA

REACTIONS (11)
  - ANGINA PECTORIS [None]
  - ARTERIAL DISORDER [None]
  - ARTHRALGIA [None]
  - CLUSTER HEADACHE [None]
  - HYPERTENSION [None]
  - MUSCULAR WEAKNESS [None]
  - MYALGIA [None]
  - MYOCARDIAL INFARCTION [None]
  - NASAL DISORDER [None]
  - RASH [None]
  - SKIN DISORDER [None]
